FAERS Safety Report 20775977 (Version 1)
Quarter: 2022Q2

REPORT INFORMATION
  Report Type: Spontaneous
  Country: CN (occurrence: CN)
  Receive Date: 20220502
  Receipt Date: 20220502
  Transmission Date: 20220721
  Serious: Yes (Other)
  Sender: FDA-Public Use
  Company Number: CN-PFIZER INC-202200635063

PATIENT
  Age: 74 Year
  Sex: Male
  Weight: 67 kg

DRUGS (3)
  1. ATORVASTATIN CALCIUM [Suspect]
     Active Substance: ATORVASTATIN CALCIUM
     Indication: Cerebral infarction
     Dosage: 20 MG, 1X/DAY
     Route: 045
     Dates: start: 20220327, end: 20220407
  2. PIRACETAM [Concomitant]
     Active Substance: PIRACETAM
     Indication: Cerebral infarction
     Dosage: 0.8 G, 3X/DAY
     Route: 045
     Dates: start: 20220407, end: 20220420
  3. METHYLCOBALAMIN [Concomitant]
     Active Substance: METHYLCOBALAMIN
     Indication: Cerebral infarction
     Dosage: 0.5 MG, 3X/DAY
     Route: 045
     Dates: start: 20220407, end: 20220420

REACTIONS (1)
  - Hepatic enzyme increased [Recovering/Resolving]

NARRATIVE: CASE EVENT DATE: 20220408
